FAERS Safety Report 25976380 (Version 2)
Quarter: 2025Q4

REPORT INFORMATION
  Report Type: Spontaneous
  Country: US (occurrence: US)
  Receive Date: 20251029
  Receipt Date: 20251031
  Transmission Date: 20260118
  Serious: No
  Sender: HALEON
  Company Number: US-HALEON-2270526

PATIENT

DRUGS (1)
  1. VOLTAREN ARTHRITIS PAIN [Suspect]
     Active Substance: DICLOFENAC SODIUM
     Indication: Pain

REACTIONS (2)
  - Application site dryness [Unknown]
  - Therapeutic product effect variable [Unknown]
